FAERS Safety Report 4907897-7 (Version None)
Quarter: 2006Q1

REPORT INFORMATION
  Report Type: 
  Country: None (occurrence: None)
  Receive Date: 20060210
  Receipt Date: 20060203
  Transmission Date: 20060701
  Serious: Yes (Hospitalization)
  Sender: FDA-Public Use
  Company Number: US-AVENTIS-200611112GDDC

PATIENT
  Age: 69 Year
  Sex: Male
  Weight: 89.36 kg

DRUGS (13)
  1. TAXOTERE [Suspect]
     Indication: NON-SMALL CELL LUNG CANCER
     Route: 042
     Dates: start: 20051021, end: 20051021
  2. CARBOPLATIN [Suspect]
     Indication: NON-SMALL CELL LUNG CANCER
     Route: 042
     Dates: start: 20051021, end: 20051021
  3. RADIOTHERAPY [Suspect]
     Indication: NON-SMALL CELL LUNG CANCER
     Dosage: DOSE: UNK
     Dates: start: 20050915, end: 20051114
  4. ASPIRIN [Concomitant]
     Dosage: DOSE: UNK
  5. COMBIVENT [Concomitant]
     Dosage: DOSE: UNK
  6. FLUOXETINE [Concomitant]
     Dosage: DOSE: UNK
  7. FLORATIL                                /MEX/ [Concomitant]
     Dosage: DOSE: UNK
  8. HYDROCODONE BITARTRATE [Concomitant]
     Dosage: DOSE: UNK
  9. LORAZEPAM [Concomitant]
     Dosage: DOSE: UNK
  10. COMPAZINE [Concomitant]
     Dosage: DOSE: UNK
  11. TRAZODONE [Concomitant]
     Dosage: DOSE: UNK
  12. OPIUM ALKALOIDS AND DERIVATIVES [Concomitant]
     Dosage: DOSE: UNK
  13. AEROBID [Concomitant]
     Dosage: DOSE: UNK

REACTIONS (3)
  - CHRONIC OBSTRUCTIVE PULMONARY DISEASE [None]
  - DYSPNOEA [None]
  - PRODUCTIVE COUGH [None]
